FAERS Safety Report 9761272 (Version 1)
Quarter: 2013Q4

REPORT INFORMATION
  Report Type: Not Available
  Country: US (occurrence: US)
  Receive Date: 20131216
  Receipt Date: 20131216
  Transmission Date: 20140711
  Serious: No
  Sender: FDA-Public Use
  Company Number: US-FOUGERA-2013FO000221

PATIENT
  Sex: Female

DRUGS (4)
  1. SOLARAZE [Suspect]
     Indication: PRECANCEROUS SKIN LESION
     Route: 061
     Dates: start: 201301
  2. CELEBREX [Concomitant]
     Indication: ARTHRITIS
  3. PAXIL [Concomitant]
     Indication: NERVOUSNESS
     Route: 048
  4. PAXIL [Concomitant]
     Indication: ANXIETY

REACTIONS (2)
  - Inappropriate schedule of drug administration [Recovered/Resolved]
  - Application site rash [Recovered/Resolved]
